FAERS Safety Report 9721896 (Version 3)
Quarter: 2014Q1

REPORT INFORMATION
  Report Type: Spontaneous
  Country: GB (occurrence: GB)
  Receive Date: 20131201
  Receipt Date: 20140220
  Transmission Date: 20141002
  Serious: Yes (Hospitalization)
  Sender: FDA-Public Use
  Company Number: GB-ROCHE-1311851

PATIENT
  Age: 53 Year
  Sex: Female
  Weight: 84 kg

DRUGS (7)
  1. XOLAIR [Suspect]
     Indication: ASTHMA
     Route: 058
  2. XOLAIR [Suspect]
     Route: 058
     Dates: start: 201211
  3. THEOPHYLLIN [Suspect]
     Indication: PRODUCT USED FOR UNKNOWN INDICATION
     Route: 065
  4. SYMBICORT [Concomitant]
     Route: 065
     Dates: start: 1992
  5. CEFATRIZINE [Concomitant]
  6. VENTOLIN [Concomitant]
     Route: 065
     Dates: start: 1996
  7. OMEPRAZOLE [Concomitant]
     Route: 065
     Dates: start: 1994

REACTIONS (3)
  - Arrhythmia [Recovered/Resolved with Sequelae]
  - Chest pain [Recovered/Resolved]
  - Antasthmatic drug level above therapeutic [Unknown]
